FAERS Safety Report 13013619 (Version 2)
Quarter: 2017Q2

REPORT INFORMATION
  Report Type: Spontaneous
  Country: AT (occurrence: AT)
  Receive Date: 20161209
  Receipt Date: 20170629
  Transmission Date: 20170830
  Serious: Yes (Other)
  Sender: FDA-Public Use
  Company Number: AT-SA-2016SA222911

PATIENT
  Age: 25 Year
  Sex: Male

DRUGS (2)
  1. METASOL [Concomitant]
     Active Substance: BENZOPHENONE\HYDROQUINONE
     Dosage: 250 ML NACL SOLUTION/ 5 DAYS
  2. LEMTRADA [Suspect]
     Active Substance: ALEMTUZUMAB
     Indication: RELAPSING-REMITTING MULTIPLE SCLEROSIS
     Route: 041
     Dates: start: 20160606, end: 20160608

REACTIONS (5)
  - Leukopenia [Recovered/Resolved]
  - Liver function test increased [Recovered/Resolved]
  - Chills [Recovered/Resolved]
  - Blood thyroid stimulating hormone increased [Recovered/Resolved]
  - Lymphopenia [Recovered/Resolved]

NARRATIVE: CASE EVENT DATE: 201606
